FAERS Safety Report 8792720 (Version 2)
Quarter: 2015Q2

REPORT INFORMATION
  Report Type: Report from Study
  Country: US (occurrence: US)
  Receive Date: 20120918
  Receipt Date: 20150403
  Transmission Date: 20150821
  Serious: Yes (Death)
  Sender: FDA-Public Use
  Company Number: US-ROCHE-1129181

PATIENT
  Age: 56 Year
  Sex: Female

DRUGS (19)
  1. KYTRIL [Concomitant]
     Active Substance: GRANISETRON HYDROCHLORIDE
     Route: 065
  2. TAXOL [Concomitant]
     Active Substance: PACLITAXEL
     Route: 065
  3. DOXIL [Concomitant]
     Active Substance: DOXORUBICIN HYDROCHLORIDE
     Route: 065
  4. OSTINOL [Concomitant]
     Route: 065
  5. BENADRYL [Concomitant]
     Active Substance: DIPHENHYDRAMINE HYDROCHLORIDE
     Route: 065
  6. CARBOPLATIN. [Suspect]
     Active Substance: CARBOPLATIN
     Indication: PRODUCT USED FOR UNKNOWN INDICATION
     Route: 065
  7. ARANESP [Concomitant]
     Active Substance: DARBEPOETIN ALFA
     Route: 065
  8. NEULASTA [Concomitant]
     Active Substance: PEGFILGRASTIM
     Route: 065
  9. AVASTIN [Suspect]
     Active Substance: BEVACIZUMAB
     Route: 065
  10. CISPLATIN. [Concomitant]
     Active Substance: CISPLATIN
     Route: 065
  11. TYLENOL [Concomitant]
     Active Substance: ACETAMINOPHEN
     Route: 065
  12. EMEND [Concomitant]
     Active Substance: APREPITANT
     Route: 065
  13. ZANTAC [Concomitant]
     Active Substance: RANITIDINE HYDROCHLORIDE
     Route: 065
  14. FIORICET [Concomitant]
     Active Substance: ACETAMINOPHEN\BUTALBITAL\CAFFEINE
     Route: 042
  15. ZYRTEC [Concomitant]
     Active Substance: CETIRIZINE HYDROCHLORIDE
     Route: 065
  16. DECADRON [Concomitant]
     Active Substance: DEXAMETHASONE
     Route: 065
  17. MAG [Concomitant]
     Route: 042
  18. AVASTIN [Suspect]
     Active Substance: BEVACIZUMAB
     Indication: GENITAL NEOPLASM MALIGNANT FEMALE
     Route: 042
     Dates: start: 20080801
  19. ALOXI [Concomitant]
     Active Substance: PALONOSETRON HYDROCHLORIDE
     Route: 065

REACTIONS (7)
  - Headache [Unknown]
  - Death [Fatal]
  - Arthralgia [Unknown]
  - Fatigue [Unknown]
  - Abdominal discomfort [Unknown]
  - Off label use [Unknown]
  - Pruritus [Unknown]

NARRATIVE: CASE EVENT DATE: 20100910
